FAERS Safety Report 23240834 (Version 1)
Quarter: 2023Q4

REPORT INFORMATION
  Report Type: Spontaneous
  Country: US (occurrence: US)
  Receive Date: 20231129
  Receipt Date: 20231129
  Transmission Date: 20240109
  Serious: Yes (Other)
  Sender: FDA-Public Use
  Company Number: US-CURIUM-2023000865

PATIENT
  Age: 54 Year
  Sex: Female

DRUGS (2)
  1. I-131 [Concomitant]
     Indication: Scan thyroid gland
     Route: 065
  2. TECHNETIUM TC-99M SODIUM PERTECHNETATE [Suspect]
     Active Substance: TECHNETIUM TC-99M SODIUM PERTECHNETATE
     Indication: Scan thyroid gland
     Route: 065

REACTIONS (1)
  - Thyroid tuberculosis [Recovering/Resolving]
